FAERS Safety Report 5423680-0 (Version None)
Quarter: 2007Q3

REPORT INFORMATION
  Report Type: 
  Country: None (occurrence: None)
  Receive Date: 20070823
  Receipt Date: 20070813
  Transmission Date: 20080115
  Serious: Yes (Death, Hospitalization)
  Sender: FDA-Public Use
  Company Number: B0483650A

PATIENT
  Age: 52 Year
  Sex: Female

DRUGS (17)
  1. AUGMENTIN '125' [Suspect]
     Dosage: 3G PER DAY
     Route: 065
     Dates: start: 20070112, end: 20070119
  2. MINI-SINTROM [Suspect]
     Route: 065
     Dates: end: 20070101
  3. PAROXETINE HCL [Concomitant]
     Route: 065
  4. ZOFRAN [Concomitant]
     Route: 065
  5. PRIMPERAN INJ [Concomitant]
     Route: 065
  6. LARGACTIL [Concomitant]
     Route: 065
  7. FOLIC ACID [Concomitant]
     Route: 065
  8. SOLU-MEDROL [Concomitant]
     Route: 065
  9. OXYNORM [Concomitant]
     Route: 065
  10. DURAGESIC-100 [Concomitant]
     Route: 065
  11. SPASFON [Concomitant]
     Route: 065
  12. PROFENID [Concomitant]
     Route: 065
  13. NEXIUM [Concomitant]
     Route: 065
  14. ATARAX [Concomitant]
     Route: 065
  15. IMOVANE [Concomitant]
     Route: 065
  16. NORMACOL [Concomitant]
     Route: 065
  17. DUPHALAC [Concomitant]
     Route: 065

REACTIONS (2)
  - DISEASE PROGRESSION [None]
  - INTERNATIONAL NORMALISED RATIO INCREASED [None]
